FAERS Safety Report 5182751-7 (Version None)
Quarter: 2006Q4

REPORT INFORMATION
  Report Type: 
  Country: None (occurrence: None)
  Receive Date: 20061220
  Receipt Date: 20051110
  Transmission Date: 20070319
  Serious: No
  Sender: FDA-Public Use
  Company Number: US-GLAXOSMITHKLINE-A0581743A

PATIENT
  Age: 41 Year
  Sex: Male

DRUGS (2)
  1. NICODERM CQ [Suspect]
     Dates: start: 20051105
  2. DECONGESTANT [Concomitant]
     Indication: DRUG USE FOR UNKNOWN INDICATION

REACTIONS (4)
  - MOUTH ULCERATION [None]
  - PAIN [None]
  - SPEECH DISORDER [None]
  - TONGUE DISCOLOURATION [None]
